FAERS Safety Report 5956259-2 (Version None)
Quarter: 2008Q4

REPORT INFORMATION
  Report Type: 
  Country: None (occurrence: None)
  Receive Date: 20081112
  Receipt Date: 20081029
  Transmission Date: 20090506
  Serious: Yes (Other)
  Sender: FDA-Public Use
  Company Number: DSU-2008-01828

PATIENT
  Sex: Male
  Weight: 99.7913 kg

DRUGS (1)
  1. WELCHOL [Suspect]
     Indication: DRUG USE FOR UNKNOWN INDICATION
     Dosage: PER ORAL
     Route: 048
     Dates: start: 20010101, end: 20070101

REACTIONS (2)
  - DRUG INTERACTION [None]
  - STAPHYLOCOCCAL INFECTION [None]
